FAERS Safety Report 7220700-8 (Version None)
Quarter: 2011Q1

REPORT INFORMATION
  Report Type: 
  Country: None (occurrence: None)
  Receive Date: 20110111
  Receipt Date: 20110106
  Transmission Date: 20110831
  Serious: Yes (Death, Hospitalization)
  Sender: FDA-Public Use
  Company Number: KR-ELI_LILLY_AND_COMPANY-KR201012004987

PATIENT
  Age: 71 Year
  Sex: Male
  Weight: 65 kg

DRUGS (2)
  1. HUMALOG MIX 75/25 [Suspect]
     Dosage: 13 U, 3/D
     Route: 058
     Dates: start: 20101126
  2. HUMALOG MIX 75/25 [Suspect]
     Indication: TYPE 2 DIABETES MELLITUS
     Dosage: 15 U, 2/D
     Route: 058
     Dates: start: 20100610, end: 20101126

REACTIONS (3)
  - HYPOPHAGIA [None]
  - DYSPEPSIA [None]
  - DEATH [None]
